FAERS Safety Report 6260454-5 (Version None)
Quarter: 2009Q3

REPORT INFORMATION
  Report Type: 
  Country: None (occurrence: None)
  Receive Date: 20090708
  Receipt Date: 20090629
  Transmission Date: 20100115
  Serious: Yes (Hospitalization)
  Sender: FDA-Public Use
  Company Number: US-JNJFOC-20090700242

PATIENT
  Sex: Male
  Weight: 41.8 kg

DRUGS (5)
  1. INFLIXIMAB [Suspect]
     Dosage: BOLUS DURING HOSPITALIZATION
     Route: 042
  2. INFLIXIMAB [Suspect]
     Route: 042
  3. INFLIXIMAB [Suspect]
     Route: 042
  4. INFLIXIMAB [Suspect]
     Indication: INFLAMMATORY BOWEL DISEASE
     Route: 042
  5. ANTIHISTAMINES [Concomitant]
     Indication: PREMEDICATION

REACTIONS (2)
  - DIZZINESS [None]
  - DYSPNOEA [None]
